FAERS Safety Report 11720075 (Version 2)
Quarter: 2016Q1

REPORT INFORMATION
  Report Type: Spontaneous
  Country: PE (occurrence: PE)
  Receive Date: 20151110
  Receipt Date: 20160208
  Transmission Date: 20160525
  Serious: Yes (Other)
  Sender: FDA-Public Use
  Company Number: PE-PFIZER INC-2015379509

PATIENT
  Age: 75 Year
  Sex: Female

DRUGS (1)
  1. ZELDOX [Suspect]
     Active Substance: ZIPRASIDONE
     Indication: DEPRESSION
     Dosage: 40 MG, 1X/DAY
     Route: 048

REACTIONS (1)
  - Gastric disorder [Recovered/Resolved]
